FAERS Safety Report 11950425 (Version 1)
Quarter: 2016Q1

REPORT INFORMATION
  Report Type: Spontaneous
  Country: US (occurrence: None)
  Receive Date: 20160121
  Receipt Date: 20160121
  Transmission Date: 20160526
  Serious: Yes (Disabling)
  Sender: FDA-Public Use
  Company Number: None

PATIENT
  Age: 28 Year
  Sex: Female
  Weight: 56.7 kg

DRUGS (2)
  1. LEVAQUIN [Suspect]
     Active Substance: LEVOFLOXACIN
     Indication: URINARY TRACT INFECTION
     Dosage: FULL RX, TAKEN BY MOUTH
     Route: 048
  2. MULTI VITAMIN [Concomitant]
     Active Substance: VITAMINS

REACTIONS (10)
  - Photosensitivity reaction [None]
  - Burning sensation [None]
  - Asthenia [None]
  - Anxiety [None]
  - Pain in extremity [None]
  - Rash pruritic [None]
  - Nausea [None]
  - Flank pain [None]
  - Heart rate increased [None]
  - Pain [None]

NARRATIVE: CASE EVENT DATE: 20080719
